FAERS Safety Report 7050227-8 (Version None)
Quarter: 2010Q4

REPORT INFORMATION
  Report Type: 
  Country: None (occurrence: None)
  Receive Date: 20101013
  Receipt Date: 20101004
  Transmission Date: 20110411
  Serious: Yes (Other)
  Sender: FDA-Public Use
  Company Number: CV20100564

PATIENT
  Age: 61 Year
  Sex: Female

DRUGS (2)
  1. CLINDAMYCIN [Suspect]
     Indication: PNEUMONIA
     Dosage: 2400 MG
  2. ATOVAQUONE (ATOVAQUONE) (ATOVAQUONE) [Concomitant]

REACTIONS (1)
  - DRUG INTERACTION [None]
